FAERS Safety Report 7970701 (Version 2)
Quarter: 2014Q1

REPORT INFORMATION
  Report Type: Spontaneous
  Country: US (occurrence: US)
  Receive Date: 20110602
  Receipt Date: 20140124
  Transmission Date: 20141002
  Serious: Yes (Life-Threatening, Hospitalization, Other)
  Sender: FDA-Public Use
  Company Number: US-BAYER-2011-047058

PATIENT
  Age: 21 Year
  Sex: Female
  Weight: 78.91 kg

DRUGS (10)
  1. YAZ [Suspect]
     Indication: PRODUCT USED FOR UNKNOWN INDICATION
     Route: 048
  2. YASMIN [Suspect]
     Indication: PRODUCT USED FOR UNKNOWN INDICATION
     Route: 048
  3. OCELLA [Suspect]
     Indication: PRODUCT USED FOR UNKNOWN INDICATION
     Route: 048
  4. DICYCLOMINE [Concomitant]
     Dosage: 20 MG, UNK
  5. ACIPHEX [Concomitant]
     Dosage: 20 MG, UNK
  6. METRONIDAZOL [Concomitant]
     Dosage: 500 MG, UNK
  7. HYDROCODONE W/APAP [Concomitant]
     Indication: ABDOMINAL PAIN
     Dosage: 5-500 MG
  8. CIPROFLOXACIN [Concomitant]
     Indication: URINARY TRACT INFECTION
     Dosage: 500 MG, UNK
  9. LEVSIN [Concomitant]
     Dosage: UNK UNK, PRN
  10. VICODIN [Concomitant]
     Dosage: UNK

REACTIONS (9)
  - Internal injury [None]
  - Organ failure [None]
  - Gallbladder disorder [None]
  - Injury [None]
  - Pain [None]
  - General physical health deterioration [None]
  - Anxiety [None]
  - Anhedonia [None]
  - Cholecystitis chronic [None]
